FAERS Safety Report 24881336 (Version 1)
Quarter: 2025Q1

REPORT INFORMATION
  Report Type: Spontaneous
  Country: AU (occurrence: AU)
  Receive Date: 20250124
  Receipt Date: 20250124
  Transmission Date: 20250409
  Serious: Yes (Other)
  Sender: Haleon PLC
  Company Number: AU-JNJFOC-20220638438

PATIENT
  Sex: Male

DRUGS (1)
  1. NICORETTE [Suspect]
     Active Substance: NICOTINE
     Indication: Smoking cessation therapy
     Dosage: 8 DF, QD (8 GUMS PER DAY FROM 9 YEARS AGO)

REACTIONS (2)
  - Drug dependence [Not Recovered/Not Resolved]
  - Incorrect product administration duration [Not Recovered/Not Resolved]
